FAERS Safety Report 5533824-8 (Version None)
Quarter: 2007Q4

REPORT INFORMATION
  Report Type: 
  Country: None (occurrence: None)
  Receive Date: 20071204
  Receipt Date: 20071121
  Transmission Date: 20080405
  Serious: Yes (Life-Threatening, Hospitalization)
  Sender: FDA-Public Use
  Company Number: FR-GENENTECH-251926

PATIENT
  Sex: Male
  Weight: 76 kg

DRUGS (5)
  1. BEVACIZUMAB [Suspect]
     Indication: COLON CANCER
     Dosage: 350 MG, Q2W
     Route: 042
     Dates: start: 20051104
  2. OXALIPLATIN [Suspect]
     Indication: COLON CANCER
     Dosage: 160 MG, Q2W
     Route: 042
     Dates: start: 20051104
  3. FLUOROURACIL [Suspect]
     Indication: COLON CANCER
     Dosage: 740 MG, Q2W
     Route: 040
     Dates: start: 20051104
  4. FLUOROURACIL [Suspect]
     Dosage: 1100 MG, Q2W
     Route: 042
  5. LEUCOVORIN CALCIUM [Suspect]
     Indication: COLON CANCER
     Dosage: 185 MG, UNK
     Route: 042
     Dates: start: 20051104

REACTIONS (1)
  - PANCREATITIS [None]
